FAERS Safety Report 25933341 (Version 2)
Quarter: 2025Q4

REPORT INFORMATION
  Report Type: Report from Study
  Country: US (occurrence: US)
  Receive Date: 20251017
  Receipt Date: 20251106
  Transmission Date: 20260117
  Serious: No
  Sender: BIOVITRUM
  Company Number: US-BIOVITRUM-2025-US-013915

PATIENT
  Age: 79 Year
  Sex: Male

DRUGS (2)
  1. DOPTELET [Suspect]
     Active Substance: AVATROMBOPAG MALEATE
     Indication: Immune thrombocytopenia
     Dosage: 30 TAB PK 20 MG TAB
     Route: 048
     Dates: start: 20190710
  2. DOPTELET [Suspect]
     Active Substance: AVATROMBOPAG MALEATE
     Dosage: TAKE 1 TABLET PO QD (ONCE A DAY)
     Route: 048
     Dates: start: 20251013

REACTIONS (2)
  - Platelet count decreased [Unknown]
  - Cardiac ablation [Unknown]
